FAERS Safety Report 13391702 (Version 2)
Quarter: 2017Q2

REPORT INFORMATION
  Report Type: Spontaneous
  Country: US (occurrence: US)
  Receive Date: 20170331
  Receipt Date: 20170509
  Transmission Date: 20170830
  Serious: Yes (Death)
  Sender: FDA-Public Use
  Company Number: US-PFIZER INC-2015332848

PATIENT
  Age: 78 Year
  Sex: Male

DRUGS (27)
  1. OMEPRAZOLE. [Concomitant]
     Active Substance: OMEPRAZOLE
     Dosage: 40 MG, DAILY
     Dates: start: 20160603
  2. CALCIUM+D3 [Concomitant]
     Indication: CHONDROPATHY
  3. AMLODIPINE BESILATE [Concomitant]
     Active Substance: AMLODIPINE BESYLATE
     Indication: ESSENTIAL HYPERTENSION
     Dosage: 5 MG, DAILY
     Dates: start: 20161005
  4. SPIRIVA [Concomitant]
     Active Substance: TIOTROPIUM BROMIDE MONOHYDRATE
     Indication: CHRONIC OBSTRUCTIVE PULMONARY DISEASE
     Dosage: UNK UNK, DAILY (1 PUFFS DAILY, 3 PAK)
     Dates: start: 20080527
  5. VENTOLIN [Concomitant]
     Active Substance: ALBUTEROL SULFATE
     Indication: DYSPNOEA
     Dosage: UNK UNK, AS NEEDED ((108 (90 BASE) MCG/ACT AEROSOL SOLN, 2 PUFFS INHALATION EVERY 6 HOURS PRN)
  6. DESOXIMETASONE. [Concomitant]
     Active Substance: DESOXIMETASONE
     Indication: ARTHRALGIA
     Dosage: UNK UNK, 2X/DAY (0.25%)
     Route: 061
  7. NITROSTAT [Concomitant]
     Active Substance: NITROGLYCERIN
     Indication: CHEST PAIN
  8. SPIRIVA [Concomitant]
     Active Substance: TIOTROPIUM BROMIDE MONOHYDRATE
     Indication: LUNG CARCINOMA CELL TYPE UNSPECIFIED STAGE 0
  9. PREDNISONE. [Concomitant]
     Active Substance: PREDNISONE
     Indication: THROMBOCYTOPENIA
     Dosage: UNK UNK, DAILY (1-2)
     Route: 048
  10. LACTULOSE. [Concomitant]
     Active Substance: LACTULOSE
     Dosage: UNK (10GM/15 ML)
  11. NITROSTAT [Concomitant]
     Active Substance: NITROGLYCERIN
     Indication: ANGINA PECTORIS
     Dosage: 0.4 MG, AS NEEDED
     Route: 060
     Dates: start: 20130426
  12. LYRICA [Suspect]
     Active Substance: PREGABALIN
     Indication: NEURALGIA
     Dosage: 300 MG, 2X/DAY
     Route: 048
  13. CALCIUM+D3 [Concomitant]
     Indication: SUPPLEMENTATION THERAPY
     Dosage: 1 DF, DAILY (1 (ONE) TABLET) (600-200MG-UNIT)
     Dates: start: 20100212
  14. CALCIUM+D3 [Concomitant]
     Indication: BONE DISORDER
  15. PREDNISONE. [Concomitant]
     Active Substance: PREDNISONE
     Indication: CHRONIC OBSTRUCTIVE PULMONARY DISEASE
     Dosage: UNK (INCREASED HIS STEROIDS) (WORSENING COPD)
     Dates: start: 201512
  16. FISH OIL [Concomitant]
     Active Substance: FISH OIL
     Dosage: 3000 MG, DAILY
     Route: 048
  17. DULERA [Concomitant]
     Active Substance: FORMOTEROL FUMARATE DIHYDRATE\MOMETASONE FUROATE
     Dosage: UNK (200-5 MCG/ACT) (AEROSOL, INHALATION)
     Route: 061
  18. DEXAMETHASONE. [Concomitant]
     Active Substance: DEXAMETHASONE
     Route: 061
  19. ASPIRIN. [Concomitant]
     Active Substance: ASPIRIN
     Indication: CORONARY ARTERY DISEASE
     Dosage: 81 MG, DAILY (QD)
  20. DESOXIMETASONE. [Concomitant]
     Active Substance: DESOXIMETASONE
     Indication: PAIN IN EXTREMITY
  21. LYRICA [Suspect]
     Active Substance: PREGABALIN
     Dosage: 200 MG, 3X/DAY
     Route: 048
     Dates: start: 20161107
  22. POLYETHYLENE GLYCOL [Concomitant]
     Active Substance: POLYETHYLENE GLYCOLS
     Dosage: 17 G, AS NEEDED (DAILY PRN)
     Dates: start: 20150720
  23. METOPROLOL SUCCINATE. [Concomitant]
     Active Substance: METOPROLOL SUCCINATE
     Dosage: 50 MG, DAILY
     Dates: start: 20160603
  24. SIMVASTATIN. [Concomitant]
     Active Substance: SIMVASTATIN
     Dosage: 40 MG, DAILY
     Dates: start: 20160603
  25. LISINOPRIL. [Concomitant]
     Active Substance: LISINOPRIL
     Dosage: 40 MG, DAILY
     Route: 048
  26. COLACE [Concomitant]
     Active Substance: DOCUSATE SODIUM
     Dosage: 100 MG, 2X/DAY
  27. KETOCONAZOLE. [Concomitant]
     Active Substance: KETOCONAZOLE
     Indication: RASH
     Dosage: UNK UNK, DAILY (2%) (1 (ONE) APPLICATION)
     Dates: start: 20161114

REACTIONS (1)
  - Death [Fatal]
